FAERS Safety Report 6685829-1 (Version None)
Quarter: 2010Q2

REPORT INFORMATION
  Report Type: 
  Country: None (occurrence: None)
  Receive Date: 20100415
  Receipt Date: 20100415
  Transmission Date: 20101027
  Serious: Yes (Hospitalization)
  Sender: FDA-Public Use
  Company Number: None

PATIENT
  Sex: Female
  Weight: 99.7913 kg

DRUGS (10)
  1. MOTRIN IB [Suspect]
     Indication: ANALGESIC THERAPY
     Dosage: 2 TABLETS 4-6 HRS AS NEEDED PO
     Route: 048
     Dates: start: 20050101, end: 20091001
  2. MOTRIN IB [Suspect]
     Indication: INFLAMMATION
     Dosage: 2 TABLETS 4-6 HRS AS NEEDED PO
     Route: 048
     Dates: start: 20050101, end: 20091001
  3. TYLENOL [Suspect]
     Indication: ANALGESIC THERAPY
     Dosage: 2 TABLETS 8 HRS AS NEEDED PO
     Route: 048
     Dates: start: 20050101, end: 20100117
  4. LEVOTHROID [Concomitant]
  5. KAPIDEX [Concomitant]
  6. PREVACID [Concomitant]
  7. CENTRUM SILVER [Concomitant]
  8. ZETIA [Concomitant]
  9. OSCION CLEANSER [Concomitant]
  10. VITAMIN B-12 [Concomitant]

REACTIONS (2)
  - PNEUMONIA [None]
  - PRODUCT QUALITY ISSUE [None]
